FAERS Safety Report 19461878 (Version 1)
Quarter: 2021Q2

REPORT INFORMATION
  Report Type: Spontaneous
  Country: CA (occurrence: CA)
  Receive Date: 20210625
  Receipt Date: 20210625
  Transmission Date: 20210717
  Serious: Yes (Other)
  Sender: FDA-Public Use
  Company Number: CA-009507513-1012USA02607

PATIENT
  Age: 46 Year
  Sex: Male

DRUGS (12)
  1. MK?9039 [Concomitant]
  2. INTELENCE [Suspect]
     Active Substance: ETRAVIRINE
     Dosage: 200 MG, BID
     Route: 048
  3. VIREAD [Suspect]
     Active Substance: TENOFOVIR DISOPROXIL FUMARATE
     Dosage: 300 MG, QD
     Route: 048
  4. LAMIVUDINE. [Suspect]
     Active Substance: LAMIVUDINE
     Dosage: 300 MG, QD
     Route: 048
  5. SULFAMETHOXAZOLE;TRIMETHOPRIM [Concomitant]
     Active Substance: SULFAMETHOXAZOLE\TRIMETHOPRIM
  6. FUZEON [Suspect]
     Active Substance: ENFUVIRTIDE
     Dosage: 90 MG, BID
     Route: 058
  7. TEMAZEPAM. [Concomitant]
     Active Substance: TEMAZEPAM
  8. HYDROXYZINE [Concomitant]
     Active Substance: HYDROXYZINE HYDROCHLORIDE
  9. ZOPICLONE [Concomitant]
     Active Substance: ZOPICLONE
  10. TOCOPHEROL [Concomitant]
     Active Substance: TOCOPHEROL
  11. ISENTRESS [Suspect]
     Active Substance: RALTEGRAVIR POTASSIUM
     Dosage: 400 MG, QD
     Route: 048
  12. ACICLOVIR [Concomitant]
     Active Substance: ACYCLOVIR

REACTIONS (6)
  - Hepatic steatosis [Unknown]
  - Aspartate aminotransferase increased [Unknown]
  - Alanine aminotransferase increased [Unknown]
  - Lymphadenopathy [Unknown]
  - Hepatitis [Unknown]
  - Hepatic enzyme increased [Unknown]
